FAERS Safety Report 11981458 (Version 1)
Quarter: 2016Q1

REPORT INFORMATION
  Report Type: Spontaneous
  Country: US (occurrence: None)
  Receive Date: 20160129
  Receipt Date: 20160129
  Transmission Date: 20160526
  Serious: Yes (Hospitalization)
  Sender: FDA-Public Use
  Company Number: None

PATIENT
  Age: 73 Year
  Sex: Female
  Weight: 44.7 kg

DRUGS (16)
  1. LASIX [Concomitant]
     Active Substance: FUROSEMIDE
  2. PRILOSEC [Concomitant]
     Active Substance: OMEPRAZOLE MAGNESIUM
  3. ROXICODONE [Concomitant]
     Active Substance: OXYCODONE HYDROCHLORIDE
  4. COUMADIN [Concomitant]
     Active Substance: WARFARIN SODIUM
  5. NT [Concomitant]
  6. NORVASC [Concomitant]
     Active Substance: AMLODIPINE BESYLATE
  7. KEFLEX [Concomitant]
     Active Substance: CEPHALEXIN
  8. PHOSLO [Concomitant]
     Active Substance: CALCIUM ACETATE
  9. COREG [Concomitant]
     Active Substance: CARVEDILOL
  10. COLACE [Concomitant]
     Active Substance: DOCUSATE SODIUM
  11. NASONEX [Concomitant]
     Active Substance: MOMETASONE FUROATE
  12. LANTUS [Suspect]
     Active Substance: INSULIN GLARGINE
     Indication: DIABETES MELLITUS
     Dosage: CHRONIC
     Route: 058
  13. LUNESTA [Concomitant]
     Active Substance: ESZOPICLONE
  14. ASA [Concomitant]
     Active Substance: ASPIRIN
  15. DELTASONE [Concomitant]
     Active Substance: PREDNISONE
  16. ALTACE [Concomitant]
     Active Substance: RAMIPRIL

REACTIONS (1)
  - Hypoglycaemia [None]

NARRATIVE: CASE EVENT DATE: 20150315
